FAERS Safety Report 10889632 (Version 3)
Quarter: 2015Q1

REPORT INFORMATION
  Report Type: Spontaneous
  Country: JP (occurrence: JP)
  Receive Date: 20150305
  Receipt Date: 20150319
  Transmission Date: 20150721
  Serious: Yes (Other)
  Sender: FDA-Public Use
  Company Number: JP-GLAXOSMITHKLINE-JP2015JPN026817

PATIENT
  Age: 26 Year
  Sex: Male

DRUGS (6)
  1. LAMICTAL [Suspect]
     Active Substance: LAMOTRIGINE
     Indication: EPILEPSY
     Dosage: UNK UNK, BID
     Route: 048
     Dates: start: 2013
  2. PENTASA [Suspect]
     Active Substance: MESALAMINE
     Indication: COLITIS ULCERATIVE
     Dosage: 1500 MG, 1D
     Route: 048
     Dates: start: 20130115
  3. TOPINA [Suspect]
     Active Substance: TOPIRAMATE
     Indication: EPILEPSY
     Dosage: UNK, BID
     Route: 048
     Dates: start: 2013
  4. MEDICATION UNKNOWN [Concomitant]
     Active Substance: UNSPECIFIED INGREDIENT
     Indication: COLITIS ULCERATIVE
     Dosage: UNK
     Dates: start: 201308, end: 201501
  5. ALEVIATIN [Suspect]
     Active Substance: PHENYTOIN SODIUM
     Indication: EPILEPSY
     Dosage: 150 MG, BID
     Route: 048
  6. DEPAKENE [Suspect]
     Active Substance: VALPROIC ACID
     Indication: EPILEPSY
     Dosage: 200 MG, BID
     Route: 048
     Dates: start: 2013

REACTIONS (8)
  - Tubulointerstitial nephritis [Not Recovered/Not Resolved]
  - Beta 2 microglobulin increased [Unknown]
  - Beta 2 microglobulin urine increased [Unknown]
  - Ultrasound kidney abnormal [Unknown]
  - Renal impairment [Unknown]
  - IgA nephropathy [Unknown]
  - Renal amyloidosis [Unknown]
  - Alpha 1 microglobulin increased [Unknown]
